FAERS Safety Report 14587556 (Version 1)
Quarter: 2018Q1

REPORT INFORMATION
  Report Type: Spontaneous
  Country: US (occurrence: US)
  Receive Date: 20180301
  Receipt Date: 20180301
  Transmission Date: 20180509
  Serious: No
  Sender: FDA-Public Use
  Company Number: US-BAYER-2018-036645

PATIENT
  Sex: Female

DRUGS (2)
  1. CLARITIN [Suspect]
     Active Substance: LORATADINE
     Indication: MULTIPLE ALLERGIES
     Route: 065
  2. CLARITIN [Suspect]
     Active Substance: LORATADINE
     Indication: BONE PAIN

REACTIONS (3)
  - Product prescribing issue [Unknown]
  - Therapeutic product effective for unapproved indication [Unknown]
  - Wrong technique in product usage process [Unknown]
